FAERS Safety Report 20471177 (Version 4)
Quarter: 2022Q1

REPORT INFORMATION
  Report Type: Spontaneous
  Country: JP (occurrence: JP)
  Receive Date: 20220214
  Receipt Date: 20220311
  Transmission Date: 20220424
  Serious: Yes (Death, Hospitalization, Other)
  Sender: FDA-Public Use
  Company Number: JP-NOVARTISPH-NVSJ2022JP002908

PATIENT
  Age: 75 Month
  Sex: Female

DRUGS (4)
  1. NEORAL [Suspect]
     Active Substance: CYCLOSPORINE
     Indication: Bone marrow transplant
     Dosage: UNK
     Route: 048
  2. NEORAL [Suspect]
     Active Substance: CYCLOSPORINE
     Dosage: UNK, DOSE REDUCED
     Route: 048
  3. PREDNISOLONE [Suspect]
     Active Substance: PREDNISOLONE
     Indication: Bone marrow transplant
     Dosage: UNK
     Route: 065
  4. GANCICLOVIR [Concomitant]
     Active Substance: GANCICLOVIR
     Indication: Cytomegalovirus test positive
     Dosage: UNK
     Route: 065

REACTIONS (3)
  - Toxic encephalopathy [Unknown]
  - Graft versus host disease in gastrointestinal tract [Unknown]
  - Graft versus host disease in skin [Unknown]
